FAERS Safety Report 22096972 (Version 1)
Quarter: 2023Q1

REPORT INFORMATION
  Report Type: Spontaneous
  Country: CA (occurrence: CA)
  Receive Date: 20230315
  Receipt Date: 20230315
  Transmission Date: 20230418
  Serious: Yes (Death, Other)
  Sender: FDA-Public Use
  Company Number: CA-PFIZER INC-202100929872

PATIENT
  Age: 88 Year
  Sex: Female
  Weight: 73 kg

DRUGS (31)
  1. RUXIENCE [Suspect]
     Active Substance: RITUXIMAB-PVVR
     Indication: Granulomatosis with polyangiitis
     Dosage: 640 MG, 4 DOSES WEEKLY
     Route: 042
     Dates: start: 20210817, end: 20210924
  2. RUXIENCE [Suspect]
     Active Substance: RITUXIMAB-PVVR
     Dosage: 650 MG, WEEKLY (4 WEEKLY)
     Route: 042
     Dates: start: 20210817, end: 20210924
  3. RUXIENCE [Suspect]
     Active Substance: RITUXIMAB-PVVR
     Dosage: 640 MG, 4 DOSES WEEKLY
     Route: 042
     Dates: start: 20210831
  4. RUXIENCE [Suspect]
     Active Substance: RITUXIMAB-PVVR
     Dosage: 650 MG, 4 DOSES WEEKLY
     Route: 042
     Dates: start: 20210910
  5. RUXIENCE [Suspect]
     Active Substance: RITUXIMAB-PVVR
     Dosage: 650 MG, 4 DOSES WEEKLY
     Route: 042
     Dates: start: 20210924
  6. RUXIENCE [Suspect]
     Active Substance: RITUXIMAB-PVVR
     Dosage: 500 MG, FOR ONE DOSE
     Route: 042
     Dates: start: 20220502, end: 20220502
  7. RUXIENCE [Suspect]
     Active Substance: RITUXIMAB-PVVR
     Dosage: 500 MG (1 DOSE ONLY)
     Route: 042
     Dates: start: 20221031, end: 20221031
  8. ACETAMINOPHEN [Concomitant]
     Active Substance: ACETAMINOPHEN
     Indication: Premedication
     Dosage: 650 MG
     Route: 048
     Dates: start: 20220502, end: 20220502
  9. AMOXICILLIN [Concomitant]
     Active Substance: AMOXICILLIN
     Dosage: UNK, 2X/DAY (X 7 DAYS )
     Dates: start: 20220317
  10. CALCIUM [Concomitant]
     Active Substance: CALCIUM
     Dosage: UNK
  11. CALCIUM [Concomitant]
     Active Substance: CALCIUM
     Dosage: 1 DF
  12. CIPRALEX [Concomitant]
     Active Substance: ESCITALOPRAM OXALATE
     Dosage: 10 MG, DAILY
     Route: 065
  13. CRESTOR [Concomitant]
     Active Substance: ROSUVASTATIN CALCIUM
     Dosage: 10 MG, DAILY
     Route: 065
  14. MAGNESIUM [Concomitant]
     Active Substance: MAGNESIUM
     Dosage: UNK
  15. MAGNESIUM [Concomitant]
     Active Substance: MAGNESIUM
     Dosage: 1 DF
  16. METHYLPREDNISOLONE [Concomitant]
     Active Substance: METHYLPREDNISOLONE
     Indication: Premedication
     Dosage: 100 MG
     Route: 042
     Dates: start: 20220502, end: 20220502
  17. NORVASC [Concomitant]
     Active Substance: AMLODIPINE BESYLATE
     Dosage: 5 MG, DAILY
     Route: 065
  18. OMEGA 3 6 9 [OMEGA 9 FATTY ACIDS;OMEGA-3 FATTY ACIDS;OMEGA-6 FATTY ACI [Concomitant]
     Dosage: UNK
  19. OMEGA 3 6 9 [OMEGA 9 FATTY ACIDS;OMEGA-3 FATTY ACIDS;OMEGA-6 FATTY ACI [Concomitant]
     Dosage: 1 DF
  20. PREDNISONE [Concomitant]
     Active Substance: PREDNISONE
     Dosage: 50 MG, DAILY
     Route: 065
  21. PREDNISONE [Concomitant]
     Active Substance: PREDNISONE
     Dosage: 30 MG, DAILY
     Route: 048
  22. PREDNISONE [Concomitant]
     Active Substance: PREDNISONE
     Dosage: 2 MG, DAILYX 1 MONTH,  TAPER
     Dates: start: 202201
  23. PREDNISONE [Concomitant]
     Active Substance: PREDNISONE
     Dosage: UNK D/C APPROX. UNKAUG2022
     Dates: end: 202208
  24. RABEPRAZOLE [Concomitant]
     Active Substance: RABEPRAZOLE
     Dosage: 20 MG, DAILY
     Route: 065
  25. SYNTHROID [Concomitant]
     Active Substance: LEVOTHYROXINE SODIUM
     Dosage: 0.1 MG, DAILY
     Route: 065
  26. SYNTHROID [Concomitant]
     Active Substance: LEVOTHYROXINE SODIUM
     Dosage: 1 DF
  27. TRAVOPROST [Concomitant]
     Active Substance: TRAVOPROST
     Dosage: UNK
     Dates: start: 202201
  28. TRAVOPROST [Concomitant]
     Active Substance: TRAVOPROST
     Dosage: 1 DF
     Dates: start: 202201
  29. VALSARTAN [Concomitant]
     Active Substance: VALSARTAN
     Dosage: 160 MG, DAILY
     Dates: start: 202201
  30. ZINC [Concomitant]
     Active Substance: ZINC
     Dosage: UNK
  31. ZINC [Concomitant]
     Active Substance: ZINC
     Dosage: 1 DF

REACTIONS (19)
  - Death [Fatal]
  - Blood pressure increased [Not Recovered/Not Resolved]
  - Off label use [Unknown]
  - Off label use [Unknown]
  - Off label use [Unknown]
  - Product use in unapproved indication [Unknown]
  - Intentional product use issue [Unknown]
  - Malaise [Unknown]
  - Myalgia [Unknown]
  - Asthenia [Unknown]
  - Musculoskeletal stiffness [Unknown]
  - Heart rate decreased [Recovered/Resolved]
  - Sneezing [Recovered/Resolved]
  - Skin laceration [Not Recovered/Not Resolved]
  - Neck injury [Not Recovered/Not Resolved]
  - Skin atrophy [Not Recovered/Not Resolved]
  - Rash macular [Not Recovered/Not Resolved]
  - Fall [Not Recovered/Not Resolved]
  - Walking aid user [Unknown]

NARRATIVE: CASE EVENT DATE: 20210924
